FAERS Safety Report 24988534 (Version 1)
Quarter: 2025Q1

REPORT INFORMATION
  Report Type: Spontaneous
  Country: CA (occurrence: CA)
  Receive Date: 20250220
  Receipt Date: 20250220
  Transmission Date: 20250408
  Serious: Yes (Death)
  Sender: SANDOZ
  Company Number: CA-SANDOZ-SDZ2025CA010306

PATIENT
  Age: 44 Year
  Sex: Male

DRUGS (5)
  1. HYDROMORPHONE [Suspect]
     Active Substance: HYDROMORPHONE
     Indication: Abdominal pain
     Dosage: 36 MG, QD
     Route: 065
  2. HERBALS\MITRAGYNINE [Suspect]
     Active Substance: HERBALS\MITRAGYNINE
     Indication: Product used for unknown indication
     Route: 065
  3. OLANZAPINE [Suspect]
     Active Substance: OLANZAPINE
     Indication: Schizoaffective disorder bipolar type
     Route: 065
  4. ESCITALOPRAM [Concomitant]
     Active Substance: ESCITALOPRAM OXALATE
     Indication: Product used for unknown indication
     Route: 065
  5. ZOPICLONE [Concomitant]
     Active Substance: ZOPICLONE
     Indication: Product used for unknown indication
     Route: 065

REACTIONS (3)
  - Renal impairment [Fatal]
  - Toxicity to various agents [Fatal]
  - Overdose [Fatal]
